FAERS Safety Report 19092124 (Version 1)
Quarter: 2021Q2

REPORT INFORMATION
  Report Type: Spontaneous
  Country: US (occurrence: US)
  Receive Date: 20210403
  Receipt Date: 20210403
  Transmission Date: 20210717
  Serious: No
  Sender: FDA-Public Use
  Company Number: None

PATIENT
  Age: 67 Year
  Sex: Female
  Weight: 50.4 kg

DRUGS (18)
  1. FAMOTIDINE. [Concomitant]
     Active Substance: FAMOTIDINE
  2. THERATEARS NUTRITION [Concomitant]
  3. CITICAL WITH VITAMIN D [Concomitant]
  4. CLOMAZEPAM [Concomitant]
  5. RESTASIS [Concomitant]
     Active Substance: CYCLOSPORINE
  6. VITAMIN D [Concomitant]
     Active Substance: VITAMIN D NOS
  7. DAYVIGO [Suspect]
     Active Substance: LEMBOREXANT
     Indication: INSOMNIA
     Dosage: ?          QUANTITY:1 TABLET(S);?
     Route: 048
     Dates: start: 20210331, end: 20210402
  8. EVOXAC [Concomitant]
     Active Substance: CEVIMELINE HYDROCHLORIDE
  9. NO DRUG NAME [Concomitant]
  10. SYNTHROID [Concomitant]
     Active Substance: LEVOTHYROXINE SODIUM
  11. AVAPRO [Concomitant]
     Active Substance: IRBESARTAN
  12. DOXAZOSIN MESYLATE. [Concomitant]
     Active Substance: DOXAZOSIN MESYLATE
  13. NUCINEX [Concomitant]
  14. OMEPRAZOLE. [Concomitant]
     Active Substance: OMEPRAZOLE
  15. FAMOTIDINE. [Concomitant]
     Active Substance: FAMOTIDINE
  16. AMBIEN CR [Concomitant]
     Active Substance: ZOLPIDEM TARTRATE
  17. MOTEGRITY [Concomitant]
     Active Substance: PRUCALOPRIDE SUCCINATE
  18. SUPER B COMPLEX [Concomitant]
     Active Substance: CYANOCOBALAMIN\DEXPANTHENOL\NIACINAMIDE\PYRIDOXINE HYDROCHLORIDE\RIBOFLAVIN 5^-PHOSPHATE SODIUM\THIAMINE HYDROCHLORIDE\VITAMIN B COMPLEX

REACTIONS (1)
  - Dyspnoea [None]

NARRATIVE: CASE EVENT DATE: 20210401
